FAERS Safety Report 10134139 (Version 1)
Quarter: 2014Q2

REPORT INFORMATION
  Report Type: Spontaneous
  Country: US (occurrence: US)
  Receive Date: 20140428
  Receipt Date: 20140428
  Transmission Date: 20141212
  Serious: No
  Sender: FDA-Public Use
  Company Number: US-SANOFI-AVENTIS-2013SA073132

PATIENT
  Sex: Female

DRUGS (2)
  1. ALLEGRA 24 HOUR [Suspect]
     Indication: MULTIPLE ALLERGIES
     Dosage: TAKEN FROM- A FEW WEEKS AGO
     Route: 048
  2. GENERAL NUTRIENTS [Concomitant]

REACTIONS (2)
  - Throat irritation [Not Recovered/Not Resolved]
  - Pharyngeal disorder [Not Recovered/Not Resolved]
